FAERS Safety Report 6408073-1 (Version None)
Quarter: 2009Q4

REPORT INFORMATION
  Report Type: 
  Country: None (occurrence: None)
  Receive Date: 20091021
  Receipt Date: 20091013
  Transmission Date: 20100525
  Serious: Yes (Life-Threatening, Hospitalization, Other)
  Sender: FDA-Public Use
  Company Number: US-ELI_LILLY_AND_COMPANY-US200910002953

PATIENT
  Sex: Male

DRUGS (16)
  1. HUMALOG MIX 75/25 [Suspect]
     Indication: TYPE 2 DIABETES MELLITUS
     Dosage: 74 U, EACH MORNING
  2. HUMALOG MIX 75/25 [Suspect]
     Dosage: 70 U, EACH EVENING
  3. MAGNESIUM [Concomitant]
  4. ASPIRIN [Concomitant]
  5. FUROSEMIDE [Concomitant]
  6. PLAVIX [Concomitant]
  7. ZOCOR [Concomitant]
  8. METOPROLOL [Concomitant]
  9. METOLAZONE [Concomitant]
  10. FLOMAX [Concomitant]
  11. AMIODARONE [Concomitant]
  12. NEXIUM [Concomitant]
  13. SPIRONOLACTONE [Concomitant]
  14. SIMVASTATIN [Concomitant]
  15. POTASSIUM CHLORIDE [Concomitant]
  16. DIGOXIN [Concomitant]

REACTIONS (7)
  - ABNORMAL BEHAVIOUR [None]
  - BLOOD GLUCOSE DECREASED [None]
  - CARDIAC ARREST [None]
  - CORONARY ARTERY OCCLUSION [None]
  - GASTROINTESTINAL INFECTION [None]
  - MALAISE [None]
  - VOMITING [None]
